FAERS Safety Report 23864388 (Version 1)
Quarter: 2024Q2

REPORT INFORMATION
  Report Type: Spontaneous
  Country: US (occurrence: US)
  Receive Date: 20240516
  Receipt Date: 20240516
  Transmission Date: 20240716
  Serious: No
  Sender: FDA-Public Use
  Company Number: US-IMP-2024000137

PATIENT
  Age: 76 Year
  Sex: Male

DRUGS (1)
  1. VEVYE [Suspect]
     Active Substance: CYCLOSPORINE
     Indication: Product used for unknown indication
     Route: 047
     Dates: start: 202403

REACTIONS (3)
  - Dry eye [Unknown]
  - Ocular discomfort [Unknown]
  - Eye pain [Unknown]

NARRATIVE: CASE EVENT DATE: 20240328
